FAERS Safety Report 6010170-X (Version None)
Quarter: 2008Q4

REPORT INFORMATION
  Report Type: 
  Country: None (occurrence: None)
  Receive Date: 20081218
  Receipt Date: 20081211
  Transmission Date: 20090506
  Serious: Yes (Hospitalization)
  Sender: FDA-Public Use
  Company Number: DE-BAXTER-2008BH013817

PATIENT
  Age: 55 Year
  Sex: Female

DRUGS (9)
  1. SODIUM CHLORIDE 0.9% IN PLASTIC CONTAINER [Suspect]
     Indication: DRUG USE FOR UNKNOWN INDICATION
     Route: 065
     Dates: start: 20080823, end: 20080827
  2. QUILONUM - SLOW RELEASE [Suspect]
     Indication: DRUG USE FOR UNKNOWN INDICATION
     Dosage: SEIT JAHREN
     Route: 048
     Dates: end: 20080822
  3. QUILONUM - SLOW RELEASE [Suspect]
     Dosage: SEIT JAHREN
     Route: 048
     Dates: start: 20080823, end: 20080827
  4. SEROQUEL [Concomitant]
     Route: 048
     Dates: start: 20040101, end: 20080827
  5. HALDOL [Concomitant]
     Route: 048
     Dates: start: 20080823, end: 20080827
  6. RIVOTRIL [Concomitant]
     Route: 048
     Dates: start: 20080823, end: 20080827
  7. LEVOTHYROXINE SODIUM [Concomitant]
     Dosage: SEIT LANGEREM
     Route: 048
  8. COTRIM [Concomitant]
     Dosage: 1600/320MG/D
     Route: 048
     Dates: start: 20080823, end: 20080826
  9. DALTEPARIN SODIUM [Concomitant]
     Dates: start: 20080823, end: 20080827

REACTIONS (1)
  - NEPHROGENIC DIABETES INSIPIDUS [None]
